FAERS Safety Report 9584957 (Version 1)
Quarter: 2013Q4

REPORT INFORMATION
  Report Type: Spontaneous
  Country: US (occurrence: US)
  Receive Date: 20131002
  Receipt Date: 20131002
  Transmission Date: 20140711
  Serious: No
  Sender: FDA-Public Use
  Company Number: US-AMGEN-USASP2013056270

PATIENT
  Age: 37 Year
  Sex: Male
  Weight: 99.32 kg

DRUGS (2)
  1. ENBREL [Suspect]
     Indication: PRODUCT USED FOR UNKNOWN INDICATION
     Dosage: 50 MG, QWK
     Route: 058
  2. IBUPROFEN [Concomitant]
     Dosage: 800 MG, UNK

REACTIONS (3)
  - Gingival blister [Recovered/Resolved]
  - Back injury [Unknown]
  - Joint injury [Unknown]
